FAERS Safety Report 9760439 (Version 1)
Quarter: 2013Q4

REPORT INFORMATION
  Report Type: Spontaneous
  Country: US (occurrence: US)
  Receive Date: 20131216
  Receipt Date: 20131216
  Transmission Date: 20140711
  Serious: Yes (Other)
  Sender: FDA-Public Use
  Company Number: US-BAYER-2013-150618

PATIENT
  Age: 59 Year
  Sex: Male

DRUGS (1)
  1. ALEVE GELCAPS [Suspect]
     Indication: MYALGIA
     Dosage: 6 DF, IN 12 HOUR PERIOD
     Route: 048
     Dates: start: 20131205

REACTIONS (2)
  - Blood urine present [Not Recovered/Not Resolved]
  - Incorrect dose administered [None]
